FAERS Safety Report 5332688-5 (Version None)
Quarter: 2007Q2

REPORT INFORMATION
  Report Type: 
  Country: None (occurrence: None)
  Receive Date: 20070523
  Receipt Date: 20070511
  Transmission Date: 20071010
  Serious: Yes (Hospitalization)
  Sender: FDA-Public Use
  Company Number: SE-PFIZER INC-2007037823

PATIENT
  Sex: Female

DRUGS (8)
  1. SUTENT [Suspect]
     Indication: RENAL CELL CARCINOMA STAGE UNSPECIFIED
     Route: 048
     Dates: start: 20070122, end: 20070129
  2. ANERVAN [Concomitant]
     Route: 054
  3. POSTAFEN [Concomitant]
     Route: 048
  4. TRILAFON [Concomitant]
     Route: 048
  5. ACETAMINOPHEN [Concomitant]
     Route: 048
  6. AKINETON [Concomitant]
     Route: 048
  7. PRIMPERAN INJ [Concomitant]
     Route: 048
  8. ALPRAZOLAM ^MERCK^ [Concomitant]
     Route: 048

REACTIONS (1)
  - CEREBRAL HAEMORRHAGE [None]
